FAERS Safety Report 4528518-1 (Version None)
Quarter: 2004Q4

REPORT INFORMATION
  Report Type: 
  Country: None (occurrence: None)
  Receive Date: 20041216
  Receipt Date: 20040406
  Transmission Date: 20050328
  Serious: No
  Sender: FDA-Public Use
  Company Number: US-BRISTOL-MYERS SQUIBB COMPANY-12552386

PATIENT
  Age: 72 Year
  Sex: Female

DRUGS (1)
  1. CHOLESTYRAMINE [Suspect]
     Indication: BLOOD CHOLESTEROL INCREASED
     Dosage: DOSE INCREASED TO 2 MEASURING SPOONS DAILY ON 29-MAR-2004
     Route: 048
     Dates: start: 20040301, end: 20040404

REACTIONS (1)
  - DIZZINESS [None]
